FAERS Safety Report 17510380 (Version 4)
Quarter: 2020Q2

REPORT INFORMATION
  Report Type: Spontaneous
  Country: NO (occurrence: NO)
  Receive Date: 20200306
  Receipt Date: 20200512
  Transmission Date: 20200713
  Serious: Yes (Hospitalization)
  Sender: FDA-Public Use
  Company Number: NO-ELI_LILLY_AND_COMPANY-NO202002003811

PATIENT
  Sex: Female

DRUGS (7)
  1. FORSTEO 250UG/ML [Suspect]
     Active Substance: TERIPARATIDE
     Indication: PRODUCT USED FOR UNKNOWN INDICATION
     Dosage: UNK UNK, UNKNOWN
     Route: 065
     Dates: start: 201912
  2. CALSIUM [Concomitant]
     Indication: PRODUCT USED FOR UNKNOWN INDICATION
  3. KESTINE [Concomitant]
     Active Substance: EBASTINE
     Indication: PRODUCT USED FOR UNKNOWN INDICATION
  4. MELATONINE [Concomitant]
     Active Substance: MELATONIN
     Indication: PRODUCT USED FOR UNKNOWN INDICATION
  5. SOMAC [Concomitant]
     Active Substance: PANTOPRAZOLE SODIUM
     Indication: PRODUCT USED FOR UNKNOWN INDICATION
  6. FORSTEO 250UG/ML [Suspect]
     Active Substance: TERIPARATIDE
     Dosage: UNK UNK, UNKNOWN
     Route: 065
  7. CIRCADIN [Concomitant]
     Active Substance: MELATONIN
     Indication: PRODUCT USED FOR UNKNOWN INDICATION

REACTIONS (16)
  - Hypotension [Unknown]
  - Headache [Not Recovered/Not Resolved]
  - Blood pressure decreased [Unknown]
  - Headache [Unknown]
  - Musculoskeletal pain [Unknown]
  - Accidental overdose [Unknown]
  - Dizziness [Recovered/Resolved]
  - Malaise [Unknown]
  - Pain [Unknown]
  - Sleep disorder [Unknown]
  - Gait inability [Unknown]
  - Drug hypersensitivity [Unknown]
  - Dizziness [Not Recovered/Not Resolved]
  - Confusional state [Unknown]
  - Product storage error [Unknown]
  - Muscle spasms [Unknown]

NARRATIVE: CASE EVENT DATE: 20200220
